FAERS Safety Report 5580500-1 (Version None)
Quarter: 2008Q1

REPORT INFORMATION
  Report Type: 
  Country: None (occurrence: None)
  Receive Date: 20080103
  Receipt Date: 20071228
  Transmission Date: 20080703
  Serious: Yes (Hospitalization)
  Sender: FDA-Public Use
  Company Number: US-ELI_LILLY_AND_COMPANY-US200712005313

PATIENT
  Sex: Male

DRUGS (2)
  1. HUMALOG [Suspect]
     Dates: start: 20070601
  2. COREG [Concomitant]

REACTIONS (3)
  - CARDIAC FAILURE CONGESTIVE [None]
  - FALL [None]
  - UPPER LIMB FRACTURE [None]
